FAERS Safety Report 5706056-8 (Version None)
Quarter: 2008Q2

REPORT INFORMATION
  Report Type: 
  Country: None (occurrence: None)
  Receive Date: 20080411
  Receipt Date: 20080401
  Transmission Date: 20081010
  Serious: Yes (Other)
  Sender: FDA-Public Use
  Company Number: TUK2008A00005

PATIENT
  Age: 70 Year
  Sex: Male

DRUGS (1)
  1. ACTOS [Suspect]
     Dates: start: 20070202, end: 20070505

REACTIONS (14)
  - ABDOMINAL DISTENSION [None]
  - ABDOMINAL MASS [None]
  - ABDOMINAL PAIN UPPER [None]
  - CHEST PAIN [None]
  - CONSTIPATION [None]
  - DECREASED APPETITE [None]
  - DIZZINESS [None]
  - DYSPEPSIA [None]
  - DYSPNOEA [None]
  - GASTROINTESTINAL MOTILITY DISORDER [None]
  - MACULAR OEDEMA [None]
  - MALAISE [None]
  - NAUSEA [None]
  - RECTAL HAEMORRHAGE [None]
